FAERS Safety Report 9131517 (Version 2)
Quarter: 2013Q2

REPORT INFORMATION
  Report Type: Spontaneous
  Country: JP (occurrence: JP)
  Receive Date: 20130301
  Receipt Date: 20130627
  Transmission Date: 20140414
  Serious: Yes (Hospitalization)
  Sender: FDA-Public Use
  Company Number: JP-009507513-1302JPN012878

PATIENT
  Age: 71 Year
  Sex: Female

DRUGS (3)
  1. GLACTIV [Suspect]
     Indication: TYPE 2 DIABETES MELLITUS
     Dosage: 25 MG, QD
     Route: 048
     Dates: start: 20121212, end: 20130207
  2. CEROCRAL [Suspect]
     Indication: CEREBRAL CIRCULATORY FAILURE
     Dosage: 20 MG, TID
     Route: 048
     Dates: start: 20121221, end: 20130207
  3. MENESIT TABLETS - 100 [Suspect]
     Indication: PARKINSON^S DISEASE
     Dosage: 50 MG, TID
     Route: 048
     Dates: start: 20121221, end: 20130207

REACTIONS (2)
  - White blood cell count decreased [Unknown]
  - White blood cell count increased [Unknown]
